FAERS Safety Report 14081132 (Version 1)
Quarter: 2017Q4

REPORT INFORMATION
  Report Type: Spontaneous
  Country: US (occurrence: US)
  Receive Date: 20171012
  Receipt Date: 20171012
  Transmission Date: 20180321
  Serious: Yes (Death)
  Sender: FDA-Public Use
  Company Number: None

PATIENT
  Age: 90 Year
  Sex: Female
  Weight: 54 kg

DRUGS (5)
  1. HALDOL [Suspect]
     Active Substance: HALOPERIDOL
     Indication: PRODUCT USED FOR UNKNOWN INDICATION
     Dates: start: 20160507, end: 20160509
  2. HALDOL [Suspect]
     Active Substance: HALOPERIDOL
     Indication: AGITATION
     Dates: start: 20160507, end: 20160509
  3. ATIVAN [Suspect]
     Active Substance: LORAZEPAM
     Indication: MOBILITY DECREASED
     Route: 048
     Dates: start: 20160507, end: 20160508
  4. ATIVAN [Suspect]
     Active Substance: LORAZEPAM
     Indication: AGITATION
     Route: 048
     Dates: start: 20160507, end: 20160508
  5. SEROQUEL [Concomitant]
     Active Substance: QUETIAPINE FUMARATE

REACTIONS (5)
  - Patella fracture [None]
  - Fall [None]
  - Rib fracture [None]
  - Dysphagia [None]
  - Unresponsive to stimuli [None]

NARRATIVE: CASE EVENT DATE: 20160507
